FAERS Safety Report 6914831-7 (Version None)
Quarter: 2010Q3

REPORT INFORMATION
  Report Type: 
  Country: None (occurrence: None)
  Receive Date: 20100809
  Receipt Date: 20100730
  Transmission Date: 20110219
  Serious: Yes (Hospitalization)
  Sender: FDA-Public Use
  Company Number: GXKR2010TW08598

PATIENT
  Age: 49 Year
  Sex: Male

DRUGS (4)
  1. MINOCYCLINE HCL [Suspect]
     Indication: SKIN TOXICITY
     Route: 065
  2. CETUXIMAB [Suspect]
     Indication: SQUAMOUS CELL CARCINOMA
     Route: 065
  3. RADIATION [Concomitant]
     Indication: SQUAMOUS CELL CARCINOMA
     Dosage: 66 GY, IN 33 FRACTIONS
  4. CISPLATIN [Concomitant]
     Indication: SQUAMOUS CELL CARCINOMA
     Dosage: 40 MG, WEEKLY

REACTIONS (10)
  - BLISTER [None]
  - DERMATITIS ACNEIFORM [None]
  - MOUTH ULCERATION [None]
  - NIKOLSKY'S SIGN [None]
  - PYREXIA [None]
  - RASH MACULAR [None]
  - SKIN EXFOLIATION [None]
  - STOMATITIS [None]
  - TOXIC EPIDERMAL NECROLYSIS [None]
  - WOUND TREATMENT [None]
